FAERS Safety Report 25581914 (Version 1)
Quarter: 2025Q3

REPORT INFORMATION
  Report Type: Spontaneous
  Country: US (occurrence: US)
  Receive Date: 20250719
  Receipt Date: 20250719
  Transmission Date: 20251020
  Serious: Yes (Other)
  Sender: AMGEN
  Company Number: US-AMGEN-USASP2025136475

PATIENT

DRUGS (3)
  1. PREDNISONE [Suspect]
     Active Substance: PREDNISONE
     Indication: Uveitis
     Route: 065
  2. PREDNISONE [Suspect]
     Active Substance: PREDNISONE
     Indication: Immunosuppression
  3. ADALIMUMAB [Suspect]
     Active Substance: ADALIMUMAB
     Indication: Uveitis
     Route: 065

REACTIONS (11)
  - Hyphaema [Unknown]
  - Hypotony of eye [Unknown]
  - Anterior chamber disorder [Unknown]
  - Glaucoma [Unknown]
  - Wound drainage [Unknown]
  - Vision blurred [Unknown]
  - Corneal defect [Unknown]
  - Varicella zoster virus infection [Unknown]
  - Toxoplasmosis [Unknown]
  - Cytomegalovirus infection [Unknown]
  - Herpes simplex [Unknown]
